FAERS Safety Report 10848785 (Version 1)
Quarter: 2015Q1

REPORT INFORMATION
  Report Type: Spontaneous
  Country: US (occurrence: US)
  Receive Date: 20150220
  Receipt Date: 20150220
  Transmission Date: 20150721
  Serious: Yes (Hospitalization)
  Sender: FDA-Public Use
  Company Number: US-CELGENEUS-163-21880-14041098

PATIENT
  Age: 69 Year
  Sex: Male

DRUGS (2)
  1. REVLIMID [Suspect]
     Active Substance: LENALIDOMIDE
     Indication: LYMPHOMA
     Route: 048
     Dates: start: 20140320
  2. REVLIMID [Suspect]
     Active Substance: LENALIDOMIDE
     Route: 048
     Dates: end: 20140402

REACTIONS (12)
  - Hyponatraemia [Recovered/Resolved with Sequelae]
  - Decreased appetite [Recovered/Resolved]
  - Asthenia [Unknown]
  - Malaise [Unknown]
  - Generalised oedema [Recovered/Resolved with Sequelae]
  - Dyspnoea [Recovered/Resolved with Sequelae]
  - Cough [Unknown]
  - Fatigue [Recovered/Resolved with Sequelae]
  - Wheezing [Recovered/Resolved with Sequelae]
  - Thirst [Unknown]
  - Conjunctivitis viral [Recovered/Resolved with Sequelae]
  - Insomnia [Unknown]

NARRATIVE: CASE EVENT DATE: 20140402
